FAERS Safety Report 6409612-7 (Version None)
Quarter: 2009Q4

REPORT INFORMATION
  Report Type: 
  Country: None (occurrence: None)
  Receive Date: 20091019
  Receipt Date: 20091019
  Transmission Date: 20100525
  Serious: No
  Sender: FDA-Public Use
  Company Number: None

PATIENT
  Age: 64 Year
  Sex: Male

DRUGS (6)
  1. AVELOX [Suspect]
     Dosage: 400 MG, QD, IV X 2 DAYS
     Route: 042
     Dates: start: 20080328, end: 20080329
  2. COUMADIN [Concomitant]
  3. AMLODIPINE [Concomitant]
  4. METOPROLOL [Concomitant]
  5. MONTELUKAST [Concomitant]
  6. PREDNISONE [Concomitant]

REACTIONS (9)
  - ABDOMINAL PAIN [None]
  - BLOOD BILIRUBIN INCREASED [None]
  - CHROMATURIA [None]
  - DECREASED APPETITE [None]
  - JAUNDICE [None]
  - LIVER FUNCTION TEST ABNORMAL [None]
  - LIVER INJURY [None]
  - NAUSEA [None]
  - PRURITUS [None]
